FAERS Safety Report 4487896-2 (Version None)
Quarter: 2004Q4

REPORT INFORMATION
  Report Type: 
  Country: None (occurrence: None)
  Receive Date: 20041025
  Receipt Date: 20041008
  Transmission Date: 20050328
  Serious: Yes (Hospitalization)
  Sender: FDA-Public Use
  Company Number: 2004-BP-06863BP

PATIENT
  Age: 87 Year
  Sex: Female
  Weight: 47.5 kg

DRUGS (12)
  1. SPIRIVA [Suspect]
     Indication: CHRONIC OBSTRUCTIVE AIRWAYS DISEASE
     Dosage: 18 MCG (18 MCG, QD), IH
     Route: 055
     Dates: start: 20040621, end: 20040702
  2. METOPROLOL TARTRATE [Concomitant]
  3. OSCAL (CALCIUM CARBONATE) [Concomitant]
  4. VITAMIN D [Concomitant]
  5. MIRALAX [Concomitant]
  6. COLACE (DOCUSATE SODIUM) [Concomitant]
  7. MS CONTIN [Concomitant]
  8. LASIX (LASIX [Concomitant]
  9. PAXIL [Concomitant]
  10. SYNTHROID [Concomitant]
  11. ADVAIR (SERETIDE MITE) [Concomitant]
  12. NEXIUM [Concomitant]

REACTIONS (6)
  - ANOXIA [None]
  - BACTERIAL INFECTION [None]
  - CHRONIC OBSTRUCTIVE AIRWAYS DISEASE [None]
  - CONJUNCTIVITIS [None]
  - LARYNGITIS [None]
  - VENTRICULAR TACHYCARDIA [None]
